FAERS Safety Report 25794144 (Version 1)
Quarter: 2025Q3

REPORT INFORMATION
  Report Type: Spontaneous
  Country: US (occurrence: US)
  Receive Date: 20250912
  Receipt Date: 20250912
  Transmission Date: 20251021
  Serious: No
  Sender: TEVA
  Company Number: US-TEVA-VS-3369808

PATIENT
  Age: 57 Year
  Sex: Female

DRUGS (1)
  1. AJOVY [Suspect]
     Active Substance: FREMANEZUMAB-VFRM
     Indication: Migraine with aura
     Dosage: STRENGTH: 225/1.5MG/ML
     Route: 065

REACTIONS (2)
  - Injection site pain [Unknown]
  - Device difficult to use [Unknown]
